FAERS Safety Report 5124483-7 (Version None)
Quarter: 2006Q4

REPORT INFORMATION
  Report Type: 
  Country: None (occurrence: None)
  Receive Date: 20060821
  Receipt Date: 20060424
  Transmission Date: 20070319
  Serious: No
  Sender: FDA-Public Use
  Company Number: TPA2006A00095

PATIENT
  Age: 35 Year
  Sex: Female
  Weight: 53.978 kg

DRUGS (2)
  1. ROZEREM [Suspect]
     Indication: INSOMNIA
     Dosage: 8 MG, QHS, PER ORAL
     Route: 048
     Dates: start: 20060116
  2. AMBIEN [Concomitant]

REACTIONS (3)
  - CHILLS [None]
  - PARAESTHESIA [None]
  - SOMNOLENCE [None]
